FAERS Safety Report 17810944 (Version 1)
Quarter: 2020Q2

REPORT INFORMATION
  Report Type: Spontaneous
  Country: IN (occurrence: IN)
  Receive Date: 20200521
  Receipt Date: 20200521
  Transmission Date: 20200714
  Serious: Yes (Other)
  Sender: FDA-Public Use
  Company Number: NVSC2020IN137548

PATIENT
  Age: 38 Year
  Sex: Female

DRUGS (3)
  1. DEXAMETHASONE. [Suspect]
     Active Substance: DEXAMETHASONE
     Indication: PYODERMA GANGRENOSUM
     Dosage: UNK UNK, QMO
     Route: 065
  2. PREDNISOLONE. [Suspect]
     Active Substance: PREDNISOLONE
     Indication: PYODERMA GANGRENOSUM
     Dosage: 30 MG
     Route: 065
  3. THALIDOMIDE [Suspect]
     Active Substance: THALIDOMIDE
     Indication: PYODERMA GANGRENOSUM
     Dosage: 100 MG
     Route: 065

REACTIONS (4)
  - Drug ineffective [Unknown]
  - Keratitis [Unknown]
  - Granulomatosis with polyangiitis [Unknown]
  - Perforation [Unknown]
